FAERS Safety Report 7966296-4 (Version None)
Quarter: 2011Q4

REPORT INFORMATION
  Report Type: 
  Country: None (occurrence: None)
  Receive Date: 20111208
  Receipt Date: 20111129
  Transmission Date: 20120403
  Serious: Yes (Other)
  Sender: FDA-Public Use
  Company Number: US-ALLERGAN-1113168US

PATIENT
  Age: 52 Year
  Sex: Male
  Weight: 77.098 kg

DRUGS (18)
  1. CREATINE [Concomitant]
     Indication: MUSCLE FATIGUE
     Dosage: 50 G, QD
  2. LEVOTHYROXINE SODIUM [Concomitant]
     Indication: HYPOTHYROIDISM
     Dosage: 125 A?G, QAM
  3. NEURONTIN [Concomitant]
     Indication: NEURALGIA
     Dosage: 800 MG, BID
  4. BOTULINUM TOXIN TYPE A [Suspect]
     Indication: HEADACHE
  5. DOMPERIDONE [Concomitant]
     Indication: IMPAIRED GASTRIC EMPTYING
     Dosage: 10 MG, QD
  6. BACLOFEN [Concomitant]
     Indication: MUSCLE SPASMS
     Dosage: 10 MG, UNK
  7. CELEBREX [Concomitant]
     Indication: MUSCLE SWELLING
     Dosage: 200 MG, QAM
  8. CALCIUM CITRATE [Concomitant]
     Indication: OSTEOPOROSIS
     Dosage: 600 MG, BID
  9. D-RIBOSE [Concomitant]
     Indication: MUSCLE FATIGUE
     Dosage: 15 G, TID
  10. BOTULINUM TOXIN TYPE A [Suspect]
     Indication: MUSCLE SPASMS
  11. MIRAPEX [Concomitant]
     Indication: SLEEP DISORDER
     Dosage: 0.5 MG, UNK
  12. OXICONTIN [Concomitant]
     Indication: ARTHRALGIA
     Dosage: 5 MG, QID
  13. BOTULINUM TOXIN TYPE A [Suspect]
     Indication: ARTHROPATHY
  14. L-CARNITINE [Concomitant]
     Indication: MUSCLE FATIGUE
     Dosage: 1000 MG, TID
  15. VITAMIN D [Concomitant]
     Indication: OSTEOPOROSIS
     Dosage: 50000 IU, Q2WEEKS
  16. ACIPHEX [Concomitant]
     Indication: GASTROOESOPHAGEAL REFLUX DISEASE
     Dosage: 10 MG, QD
  17. ONDANSETRON [Concomitant]
     Indication: NAUSEA
     Dosage: 8 MG, PRN
  18. BOTULINUM TOXIN TYPE A [Suspect]
     Indication: MUSCLE DISORDER
     Dosage: 250 UNITS, SINGLE
     Route: 030
     Dates: start: 20110823, end: 20110823

REACTIONS (10)
  - DIZZINESS [None]
  - MUSCLE ATROPHY [None]
  - NAUSEA [None]
  - MYOPATHY [None]
  - NASOPHARYNGITIS [None]
  - ELECTROMYOGRAM ABNORMAL [None]
  - MUSCULAR WEAKNESS [None]
  - MONOPLEGIA [None]
  - INFLUENZA [None]
  - HEADACHE [None]
